FAERS Safety Report 15420211 (Version 1)
Quarter: 2018Q3

REPORT INFORMATION
  Report Type: Spontaneous
  Country: AU (occurrence: AU)
  Receive Date: 20180924
  Receipt Date: 20180924
  Transmission Date: 20181010
  Serious: Yes (Hospitalization, Other)
  Sender: FDA-Public Use
  Company Number: AU-OTSUKA-2018_031640

PATIENT
  Age: 22 Year
  Sex: Female

DRUGS (8)
  1. REXULTI [Suspect]
     Active Substance: BREXPIPRAZOLE
     Indication: PERSONALITY DISORDER
     Dosage: OVERDOSE WITH 7 DOSAGE FORMS OF 1MG REXULTI
     Route: 065
     Dates: start: 20180612
  2. FLUVOXAMINE [Concomitant]
     Active Substance: FLUVOXAMINE
     Indication: ANXIETY
  3. PREGABALIN. [Concomitant]
     Active Substance: PREGABALIN
     Indication: ANXIETY
  4. REXULTI [Suspect]
     Active Substance: BREXPIPRAZOLE
     Indication: ANXIETY
  5. REXULTI [Suspect]
     Active Substance: BREXPIPRAZOLE
     Indication: POISONING DELIBERATE
  6. PREGABALIN. [Concomitant]
     Active Substance: PREGABALIN
     Indication: PERSONALITY DISORDER
     Dosage: UNK
     Route: 065
  7. FLUVOXAMINE [Concomitant]
     Active Substance: FLUVOXAMINE
     Indication: PERSONALITY DISORDER
     Dosage: 150 MG, QD
     Route: 065
  8. ACETAZOLAMIDE. [Concomitant]
     Active Substance: ACETAZOLAMIDE
     Indication: IDIOPATHIC INTRACRANIAL HYPERTENSION
     Dosage: UNK
     Route: 065

REACTIONS (4)
  - Generalised tonic-clonic seizure [Unknown]
  - Product use in unapproved indication [Unknown]
  - Intentional overdose [Unknown]
  - Myoclonus [Unknown]
